FAERS Safety Report 10206923 (Version 1)
Quarter: 2014Q2

REPORT INFORMATION
  Report Type: Spontaneous
  Country: US (occurrence: None)
  Receive Date: 20140527
  Receipt Date: 20140527
  Transmission Date: 20141212
  Serious: Yes (Hospitalization)
  Sender: FDA-Public Use
  Company Number: None

PATIENT
  Age: 38 Year
  Sex: Female

DRUGS (11)
  1. PROPOFOL [Suspect]
     Indication: SEDATION
     Dosage: VARIED  CONTINUOUS  IV
     Route: 042
     Dates: start: 20120608, end: 20120609
  2. DOCUSATE [Concomitant]
  3. EPOPROSTENOL [Concomitant]
  4. FAMOTIDINE [Concomitant]
  5. HEPARIN [Concomitant]
  6. HYDROMORPHONE [Concomitant]
  7. LORAZEPAM [Concomitant]
  8. MILRINONE [Concomitant]
  9. PIPERACILLIN/TAZOBACTAM [Concomitant]
  10. SENNA [Concomitant]
  11. VANCOMYCIN [Concomitant]

REACTIONS (1)
  - Blood pressure decreased [None]
